FAERS Safety Report 6088530-0 (Version None)
Quarter: 2009Q1

REPORT INFORMATION
  Report Type: 
  Country: None (occurrence: None)
  Receive Date: 20090220
  Receipt Date: 20090220
  Transmission Date: 20090719
  Serious: Yes (Other)
  Sender: FDA-Public Use
  Company Number: None

PATIENT
  Age: 50 Year
  Sex: Female
  Weight: 52.1637 kg

DRUGS (1)
  1. LOVAZA [Suspect]
     Indication: ANAEMIA
     Dosage: 2 GRAM CAPSULES 2 TIMES A DAY PO
     Route: 048
     Dates: start: 20090112, end: 20090218

REACTIONS (14)
  - ALANINE AMINOTRANSFERASE INCREASED [None]
  - ANOREXIA [None]
  - ARRHYTHMIA [None]
  - DIZZINESS [None]
  - GASTRITIS [None]
  - HAEMANGIOMA OF LIVER [None]
  - HYPERGLYCAEMIA [None]
  - HYPERHIDROSIS [None]
  - HYPERTENSION [None]
  - NECK PAIN [None]
  - NEOPLASM [None]
  - SINUSITIS [None]
  - TACHYCARDIA [None]
  - VERTIGO [None]
